FAERS Safety Report 5252080-1 (Version None)
Quarter: 2007Q1

REPORT INFORMATION
  Report Type: 
  Country: None (occurrence: None)
  Receive Date: 20070226
  Receipt Date: 20070220
  Transmission Date: 20070707
  Serious: Yes (Life-Threatening)
  Sender: FDA-Public Use
  Company Number: 2007SP003140

PATIENT
  Age: 58 Year
  Sex: Male

DRUGS (12)
  1. TEMOZOLOMIDE (S-P) (TEMOZOLOMIDE) [Suspect]
     Indication: GLIOBLASTOMA MULTIFORME
     Dosage: 130 MG QD PO; 270 MG QD PO ; 355 MG QD PO ; 355 MG QD PO; 255 MG QD PO; PO
     Route: 048
     Dates: start: 20060126, end: 20060309
  2. TEMOZOLOMIDE (S-P) (TEMOZOLOMIDE) [Suspect]
     Indication: GLIOBLASTOMA MULTIFORME
     Dosage: 130 MG QD PO; 270 MG QD PO ; 355 MG QD PO ; 355 MG QD PO; 255 MG QD PO; PO
     Route: 048
     Dates: start: 20060407, end: 20060411
  3. TEMOZOLOMIDE (S-P) (TEMOZOLOMIDE) [Suspect]
     Indication: GLIOBLASTOMA MULTIFORME
     Dosage: 130 MG QD PO; 270 MG QD PO ; 355 MG QD PO ; 355 MG QD PO; 255 MG QD PO; PO
     Route: 048
     Dates: start: 20060505, end: 20060509
  4. TEMOZOLOMIDE (S-P) (TEMOZOLOMIDE) [Suspect]
     Indication: GLIOBLASTOMA MULTIFORME
     Dosage: 130 MG QD PO; 270 MG QD PO ; 355 MG QD PO ; 355 MG QD PO; 255 MG QD PO; PO
     Route: 048
     Dates: start: 20060602, end: 20060606
  5. TEMOZOLOMIDE (S-P) (TEMOZOLOMIDE) [Suspect]
     Indication: GLIOBLASTOMA MULTIFORME
     Dosage: 130 MG QD PO; 270 MG QD PO ; 355 MG QD PO ; 355 MG QD PO; 255 MG QD PO; PO
     Route: 048
     Dates: start: 20060707, end: 20060707
  6. TEMOZOLOMIDE (S-P) (TEMOZOLOMIDE) [Suspect]
     Indication: GLIOBLASTOMA MULTIFORME
     Dosage: 130 MG QD PO; 270 MG QD PO ; 355 MG QD PO ; 355 MG QD PO; 255 MG QD PO; PO
     Route: 048
     Dates: start: 20060804, end: 20060808
  7. TEMOZOLOMIDE (S-P) (TEMOZOLOMIDE) [Suspect]
     Indication: GLIOBLASTOMA MULTIFORME
     Dosage: 130 MG QD PO; 270 MG QD PO ; 355 MG QD PO ; 355 MG QD PO; 255 MG QD PO; PO
     Route: 048
     Dates: start: 20060901, end: 20060905
  8. TEMOZOLOMIDE (S-P) (TEMOZOLOMIDE) [Suspect]
     Indication: GLIOBLASTOMA MULTIFORME
     Dosage: 130 MG QD PO; 270 MG QD PO ; 355 MG QD PO ; 355 MG QD PO; 255 MG QD PO; PO
     Route: 048
     Dates: start: 20060929, end: 20061003
  9. TEMOZOLOMIDE (S-P) (TEMOZOLOMIDE) [Suspect]
     Indication: GLIOBLASTOMA MULTIFORME
     Dosage: 130 MG QD PO; 270 MG QD PO ; 355 MG QD PO ; 355 MG QD PO; 255 MG QD PO; PO
     Route: 048
     Dates: start: 20061027, end: 20061031
  10. TEMOZOLOMIDE (S-P) (TEMOZOLOMIDE) [Suspect]
     Indication: GLIOBLASTOMA MULTIFORME
     Dosage: 130 MG QD PO; 270 MG QD PO ; 355 MG QD PO ; 355 MG QD PO; 255 MG QD PO; PO
     Route: 048
     Dates: start: 20061124, end: 20061128
  11. TEMOZOLOMIDE (S-P) (TEMOZOLOMIDE) [Suspect]
     Indication: GLIOBLASTOMA MULTIFORME
     Dosage: 130 MG QD PO; 270 MG QD PO ; 355 MG QD PO ; 355 MG QD PO; 255 MG QD PO; PO
     Route: 048
     Dates: start: 20061222, end: 20061226
  12. RADIATION THERAPY [Concomitant]

REACTIONS (1)
  - RESPIRATORY FAILURE [None]
